FAERS Safety Report 9012814 (Version 2)
Quarter: 2013Q1

REPORT INFORMATION
  Report Type: Spontaneous
  Country: US (occurrence: US)
  Receive Date: 20130114
  Receipt Date: 20130315
  Transmission Date: 20140127
  Serious: Yes (Hospitalization)
  Sender: FDA-Public Use
  Company Number: US-US-EMD SERONO, INC.-7179452

PATIENT
  Age: 50 None
  Sex: Female

DRUGS (4)
  1. REBIF [Suspect]
     Indication: PRODUCT USED FOR UNKNOWN INDICATION
     Route: 058
     Dates: start: 20121115, end: 20121126
  2. REBIF [Suspect]
     Route: 058
     Dates: start: 20121126
  3. REBIF [Suspect]
     Route: 058
     Dates: start: 201301
  4. IBUPROFEN [Concomitant]
     Indication: PREMEDICATION

REACTIONS (3)
  - Pneumonia legionella [Recovered/Resolved]
  - Pancreatitis [Recovered/Resolved]
  - Diarrhoea [Unknown]
